FAERS Safety Report 15777693 (Version 1)
Quarter: 2018Q4

REPORT INFORMATION
  Report Type: Report from Study
  Country: BR (occurrence: BR)
  Receive Date: 20181231
  Receipt Date: 20181231
  Transmission Date: 20190205
  Serious: Yes (Other)
  Sender: FDA-Public Use
  Company Number: PHHY2017BR048539

PATIENT
  Age: 45 Year
  Sex: Female
  Weight: 52 kg

DRUGS (11)
  1. NAPROXEN. [Concomitant]
     Active Substance: NAPROXEN
     Indication: ANKYLOSING SPONDYLITIS
     Dosage: 500 MG, BID
     Route: 048
     Dates: start: 2009
  2. PURAN [Concomitant]
     Active Substance: LEVOTHYROXINE SODIUM
     Indication: THYROID OPERATION
     Dosage: 125 MG, QD
     Route: 048
     Dates: start: 2001
  3. COSENTYX [Suspect]
     Active Substance: SECUKINUMAB
     Dosage: 150 MG, QMO
     Route: 058
     Dates: start: 20180730
  4. COSENTYX [Suspect]
     Active Substance: SECUKINUMAB
     Dosage: 150 MG, UNK
     Route: 058
  5. PARACETAMOL [Concomitant]
     Active Substance: ACETAMINOPHEN
     Indication: ANKYLOSING SPONDYLITIS
     Dosage: 500 MG, BID
     Route: 048
     Dates: start: 2009
  6. DIPYRONE [Concomitant]
     Active Substance: DIPYRONE
     Indication: ANKYLOSING SPONDYLITIS
     Dosage: 1 G, QD
     Route: 048
     Dates: start: 2009
  7. COSENTYX [Suspect]
     Active Substance: SECUKINUMAB
     Dosage: 300 MG, QW (TWO 150 MG INJECTIONS)
     Route: 058
     Dates: start: 20170320
  8. COSENTYX [Suspect]
     Active Substance: SECUKINUMAB
     Dosage: 150 MG, QMO
     Route: 058
     Dates: start: 20180408
  9. COSENTYX [Suspect]
     Active Substance: SECUKINUMAB
     Indication: ANKYLOSING SPONDYLITIS
     Dosage: 150 MG, QMO
     Route: 058
     Dates: start: 20170214
  10. COSENTYX [Suspect]
     Active Substance: SECUKINUMAB
     Dosage: 150 MG, QMO
     Route: 058
     Dates: start: 201803
  11. PREGABALIN. [Concomitant]
     Active Substance: PREGABALIN
     Indication: ANKYLOSING SPONDYLITIS
     Dosage: 100 MG, BID
     Route: 048
     Dates: start: 2016

REACTIONS (24)
  - Inflammation [Recovering/Resolving]
  - Pyrexia [Not Recovered/Not Resolved]
  - Back pain [Not Recovered/Not Resolved]
  - Injection site erythema [Recovered/Resolved]
  - Malaise [Not Recovered/Not Resolved]
  - Fatigue [Not Recovered/Not Resolved]
  - Device malfunction [Recovering/Resolving]
  - Pain [Recovering/Resolving]
  - Accidental exposure to product [Recovering/Resolving]
  - Ankylosing spondylitis [Recovering/Resolving]
  - Joint stiffness [Not Recovered/Not Resolved]
  - Injection site pain [Recovering/Resolving]
  - Injection site pruritus [Recovered/Resolved]
  - Drug effect incomplete [Unknown]
  - Injection site hypersensitivity [Recovered/Resolved]
  - Weight increased [Unknown]
  - Speech disorder [Unknown]
  - Hypersensitivity [Recovered/Resolved]
  - Neoplasm [Unknown]
  - Gait disturbance [Recovering/Resolving]
  - Incorrect dose administered by device [Recovering/Resolving]
  - Chills [Not Recovered/Not Resolved]
  - Injection site mass [Recovered/Resolved]
  - Injection site dryness [Recovered/Resolved]

NARRATIVE: CASE EVENT DATE: 20170327
